FAERS Safety Report 9222750 (Version 2)
Quarter: 2013Q2

REPORT INFORMATION
  Report Type: Report from Study
  Country: DE (occurrence: DE)
  Receive Date: 20130410
  Receipt Date: 20130506
  Transmission Date: 20140414
  Serious: Yes (Death)
  Sender: FDA-Public Use
  Company Number: DE-ROCHE-1208912

PATIENT
  Age: 62 Year
  Sex: Female

DRUGS (1)
  1. ALTEPLASE [Suspect]
     Indication: CEREBRAL ARTERY OCCLUSION
     Dosage: 0.9 MG/KG FOR 1 H WITH 10 PERCENT AS BOLUS
     Route: 042

REACTIONS (1)
  - Death [Fatal]
